FAERS Safety Report 4854818-1 (Version None)
Quarter: 2005Q4

REPORT INFORMATION
  Report Type: 
  Country: None (occurrence: None)
  Receive Date: 20051213
  Receipt Date: 20051202
  Transmission Date: 20060501
  Serious: Yes (Hospitalization, Disabling, Other)
  Sender: FDA-Public Use
  Company Number: 2005162146

PATIENT
  Age: 17 Year
  Sex: Male

DRUGS (6)
  1. CETIRIZINE/PSEUDOEPHEDRINE (PSEUDOEPHEDRINE, CETIRIZINE) [Suspect]
     Indication: RHINITIS
     Dosage: 10/240 MG (2 IN 1 D), ORAL
     Route: 048
     Dates: start: 20051107, end: 20051115
  2. MAGNE-B6 (MAGNESIUM LACTATE, PYRIDOXINE HYDROCHLORIDE) [Concomitant]
  3. PADMA 28 (HERBAL EXTRACTS NOS) [Concomitant]
  4. FUSAFUNGINE (FUSAFUNGINE) [Concomitant]
  5. CLARITHROMYCIN [Concomitant]
  6. CEFUROXIME AXETIL [Concomitant]

REACTIONS (1)
  - EPILEPSY [None]
